FAERS Safety Report 7774586-3 (Version None)
Quarter: 2011Q3

REPORT INFORMATION
  Report Type: 
  Country: None (occurrence: None)
  Receive Date: 20110923
  Receipt Date: 20110920
  Transmission Date: 20111222
  Serious: Yes (Hospitalization)
  Sender: FDA-Public Use
  Company Number: NL-PFIZER INC-2011214878

PATIENT
  Age: 47 Year
  Sex: Female
  Weight: 109 kg

DRUGS (3)
  1. VARENICLINE TARTRATE [Suspect]
     Dosage: 0.5 MG, 2X/DAY
     Dates: start: 20110801, end: 20110830
  2. THYRAX [Concomitant]
     Indication: THYROIDITIS
     Dosage: 0.075 MG, 1X/DAY
     Dates: start: 20110426
  3. VARENICLINE TARTRATE [Suspect]
     Indication: SMOKING CESSATION THERAPY
     Dosage: 0.5 MG; UNK
     Route: 048
     Dates: start: 20110826, end: 20110801

REACTIONS (8)
  - FEELING COLD [None]
  - HYPERSENSITIVITY [None]
  - VOMITING [None]
  - CHEST DISCOMFORT [None]
  - MALAISE [None]
  - PARAESTHESIA [None]
  - DYSPNOEA [None]
  - PALPITATIONS [None]
